FAERS Safety Report 12545271 (Version 1)
Quarter: 2016Q3

REPORT INFORMATION
  Report Type: Spontaneous
  Country: US (occurrence: US)
  Receive Date: 20160711
  Receipt Date: 20160711
  Transmission Date: 20161109
  Serious: No
  Sender: FDA-Public Use
  Company Number: US-009507513-1607USA000369

PATIENT
  Sex: Female

DRUGS (1)
  1. ASMANEX HFA [Suspect]
     Active Substance: MOMETASONE FUROATE
     Dosage: 100 MICROGRAM, UNK
     Route: 055

REACTIONS (3)
  - Product container issue [Unknown]
  - Accidental overdose [Unknown]
  - No adverse event [Unknown]
